FAERS Safety Report 13766318 (Version 4)
Quarter: 2020Q2

REPORT INFORMATION
  Report Type: Report from Study
  Country: FR (occurrence: FR)
  Receive Date: 20170719
  Receipt Date: 20200505
  Transmission Date: 20200713
  Serious: Yes (Other)
  Sender: FDA-Public Use
  Company Number: FR-ROCHE-1960445

PATIENT
  Age: 68 Year
  Sex: Female

DRUGS (10)
  1. ATEZOLIZUMAB. [Suspect]
     Active Substance: ATEZOLIZUMAB
     Dosage: REINTRODUCED
     Route: 042
     Dates: start: 20170627
  2. XANAX [Concomitant]
     Active Substance: ALPRAZOLAM
     Route: 048
  3. CAELYX [Suspect]
     Active Substance: DOXORUBICIN HYDROCHLORIDE
     Indication: OVARIAN CANCER
     Dosage: ON 16/05/2017, PATIENT RECEIVED LAST DOSE OF PEGYLATED LIPOSOMAL DOXORUBICIN HYDROCHLORIDE BEFORE TH
     Route: 042
     Dates: start: 20170323, end: 20170530
  4. BEVACIZUMAB. [Suspect]
     Active Substance: BEVACIZUMAB
     Indication: OVARIAN CANCER
     Dosage: ON 16/MAY/2017, PATIENT RECEIVED LAST DOSE OF BEVACIZUMAB BEFORE THE EVENT.?DAY1 AND DAY 15 IN EACH
     Route: 042
     Dates: start: 20170323, end: 20170530
  5. CAELYX [Suspect]
     Active Substance: DOXORUBICIN HYDROCHLORIDE
     Dosage: REINTRODUCED
     Route: 042
     Dates: start: 20170711
  6. ESCITALOPRAM [Concomitant]
     Active Substance: ESCITALOPRAM OXALATE
     Route: 048
  7. CARBOPLATIN. [Suspect]
     Active Substance: CARBOPLATIN
     Indication: OVARIAN CANCER
     Dosage: DOSE: AUC = 5, DAY 1 IN EACH CYCLE?ON 16/05/2017, PATIENT RECEIVED LAST DOSE OF CARBOPLATIN BEFORE T
     Route: 042
     Dates: start: 20170323, end: 20170530
  8. BEVACIZUMAB. [Suspect]
     Active Substance: BEVACIZUMAB
     Dosage: REINTRODUCED
     Route: 042
     Dates: start: 20170613
  9. ATEZOLIZUMAB. [Suspect]
     Active Substance: ATEZOLIZUMAB
     Indication: OVARIAN CANCER
     Dosage: ON 16/MAY/2017, PATIENT RECEIVED LAST DOSE OF ATEZOLIZUMAB BEFORE THE EVENT.?DAY1 AND DAY 15 IN EACH
     Route: 042
     Dates: start: 20170323, end: 20170530
  10. CARBOPLATIN. [Suspect]
     Active Substance: CARBOPLATIN
     Dosage: REINTRODUCED
     Route: 042
     Dates: start: 20170613

REACTIONS (1)
  - Palmar-plantar erythrodysaesthesia syndrome [Recovered/Resolved]

NARRATIVE: CASE EVENT DATE: 20170526
